FAERS Safety Report 5538374-0 (Version None)
Quarter: 2007Q4

REPORT INFORMATION
  Report Type: 
  Country: None (occurrence: None)
  Receive Date: 20071205
  Receipt Date: 20071120
  Transmission Date: 20080405
  Serious: Yes (Disabling)
  Sender: FDA-Public Use
  Company Number: S07-FRA-06108-01

PATIENT
  Age: 39 Year
  Sex: Female
  Weight: 47 kg

DRUGS (3)
  1. CITALOPRAM HYDROBROMIDE [Suspect]
     Indication: DEPRESSION
     Dosage: 20 MG TID PO
     Route: 048
     Dates: start: 20070924
  2. HOMEOPATHIC PREPARATION (NOS) [Concomitant]
  3. XANAX [Concomitant]

REACTIONS (1)
  - PANIC ATTACK [None]
